FAERS Safety Report 8990765 (Version 3)
Quarter: 2013Q1

REPORT INFORMATION
  Report Type: Report from Study
  Country: US (occurrence: US)
  Receive Date: 20121228
  Receipt Date: 20130314
  Transmission Date: 20140127
  Serious: Yes (Hospitalization, Other)
  Sender: FDA-Public Use
  Company Number: US-BAYER-2012-134145

PATIENT
  Age: 48 Year
  Sex: Male
  Weight: 102.95 kg

DRUGS (23)
  1. NEXAVAR [Suspect]
     Indication: HEPATIC CANCER
     Dosage: 200 MG, BID
     Route: 048
     Dates: start: 20121204
  2. NEXAVAR [Suspect]
     Indication: HEPATIC CANCER
     Dosage: 200 MG, BID
     Route: 048
     Dates: start: 20121210
  3. LIDODERM [Concomitant]
  4. PRILOSEC [Concomitant]
     Dosage: 20 MG, BID
     Route: 048
  5. BACTRIM DS [Concomitant]
     Dosage: 400 MG, 1 TABLET ONCE EVERY MON, WED AND FRI.
     Route: 048
  6. PROGRAF [Concomitant]
     Dosage: 1 MG AM AND 2 MG PM
     Route: 048
  7. AMOXIL [Concomitant]
  8. AMBIEN [Concomitant]
     Dosage: 5 MG - TAKE 1-2 TABLETS NIGHTLY AS NEEDED
     Route: 048
  9. CYCLOBENZAPRINE [Concomitant]
  10. HYDROMORPHONE [Concomitant]
  11. INSULIN ASPART [Concomitant]
  12. INSULIN GLARGINE [Concomitant]
  13. INSULIN [INSULIN] [Concomitant]
  14. LIDOCAINE [Concomitant]
  15. OMEPRAZOLE [Concomitant]
  16. ONDANSETRON [Concomitant]
  17. TACROLIMUS [Concomitant]
  18. ZOLPIDEM [Concomitant]
  19. SULFAMETHOXAZOLE W/TRIMETHOPRIM [Concomitant]
  20. AMOXICILLIN [Concomitant]
  21. CIPROFLOXACIN [Concomitant]
  22. GABAPENTIN [Concomitant]
  23. MAGNESIUM OXIDE [Concomitant]

REACTIONS (26)
  - Gait disturbance [None]
  - Bile duct stenosis [None]
  - Hyperkeratosis [Not Recovered/Not Resolved]
  - Nasopharyngitis [Not Recovered/Not Resolved]
  - Ear infection [Not Recovered/Not Resolved]
  - Localised infection [Not Recovered/Not Resolved]
  - Pharyngitis [Recovered/Resolved]
  - Ear pain [Not Recovered/Not Resolved]
  - Facial pain [Not Recovered/Not Resolved]
  - Oropharyngeal pain [Recovered/Resolved]
  - Pruritus [None]
  - Headache [None]
  - Blood pressure increased [Recovered/Resolved]
  - Vitamin D decreased [Not Recovered/Not Resolved]
  - Vitamin B12 decreased [Not Recovered/Not Resolved]
  - Blood magnesium decreased [Not Recovered/Not Resolved]
  - Blister [Recovered/Resolved]
  - Erythema [None]
  - Pyrexia [None]
  - Malaise [None]
  - Pain in extremity [None]
  - Muscle spasms [None]
  - Back pain [None]
  - Asthenia [None]
  - Hypoaesthesia [None]
  - Fatigue [None]
